FAERS Safety Report 12477657 (Version 2)
Quarter: 2016Q3

REPORT INFORMATION
  Report Type: Report from Study
  Country: CA (occurrence: CA)
  Receive Date: 20160617
  Receipt Date: 20160720
  Transmission Date: 20161109
  Serious: Yes (Hospitalization)
  Sender: FDA-Public Use
  Company Number: CA-ABBVIE-16K-028-1546650-00

PATIENT
  Age: 31 Year
  Sex: Female

DRUGS (1)
  1. HUMIRA [Suspect]
     Active Substance: ADALIMUMAB
     Indication: CROHN^S DISEASE
     Route: 058
     Dates: start: 20091112, end: 20160708

REACTIONS (4)
  - Fatigue [Not Recovered/Not Resolved]
  - Crohn^s disease [Unknown]
  - Exposure during pregnancy [Unknown]
  - Malaise [Unknown]

NARRATIVE: CASE EVENT DATE: 201605
